FAERS Safety Report 8996149 (Version 1)
Quarter: 2013Q1

REPORT INFORMATION
  Report Type: Other
  Country: GB (occurrence: GB)
  Receive Date: 20130103
  Receipt Date: 20130103
  Transmission Date: 20140127
  Serious: Yes (Other)
  Sender: FDA-Public Use
  Company Number: GB-WATSON-2012-22944

PATIENT
  Age: 61 Year
  Sex: Male
  Weight: 69 kg

DRUGS (1)
  1. SIMVASTATIN (UNKNOWN) [Suspect]
     Indication: HYPERCHOLESTEROLAEMIA
     Dosage: 40 MG, UNKNOWN
     Route: 065

REACTIONS (2)
  - Nightmare [Recovered/Resolved]
  - Myalgia [Recovered/Resolved]
